FAERS Safety Report 8033680-2 (Version None)
Quarter: 2012Q1

REPORT INFORMATION
  Report Type: 
  Country: None (occurrence: None)
  Receive Date: 20120110
  Receipt Date: 20120103
  Transmission Date: 20120608
  Serious: Yes (Hospitalization)
  Sender: FDA-Public Use
  Company Number: US-GLAXOSMITHKLINE-A0833018A

PATIENT
  Age: 51 Year
  Sex: Female
  Weight: 106.4 kg

DRUGS (3)
  1. PILOCARPINE [Concomitant]
  2. MICRONASE [Concomitant]
  3. AVANDIA [Suspect]
     Indication: DIABETES MELLITUS
     Dosage: 8MG PER DAY
     Route: 048
     Dates: end: 20030314

REACTIONS (4)
  - CARDIAC FAILURE CONGESTIVE [None]
  - PULMONARY OEDEMA [None]
  - BRONCHOPNEUMONIA [None]
  - WEIGHT INCREASED [None]
